FAERS Safety Report 9828082 (Version 2)
Quarter: 2014Q1

REPORT INFORMATION
  Report Type: Spontaneous
  Country: US (occurrence: US)
  Receive Date: 20140117
  Receipt Date: 20140117
  Transmission Date: 20141002
  Serious: No
  Sender: FDA-Public Use
  Company Number: US-GILEAD-2010-0030877

PATIENT
  Sex: Male

DRUGS (2)
  1. ATRIPLA [Suspect]
     Indication: HIV INFECTION
     Dosage: SINGLE DOSE
  2. LOPINAVIR/RITONAVIR [Concomitant]
     Indication: HIV INFECTION

REACTIONS (2)
  - Communication disorder [Unknown]
  - Illusion [Unknown]
